FAERS Safety Report 13577211 (Version 3)
Quarter: 2017Q3

REPORT INFORMATION
  Report Type: Spontaneous
  Country: JP (occurrence: JP)
  Receive Date: 20170524
  Receipt Date: 20170721
  Transmission Date: 20171127
  Serious: Yes (Other)
  Sender: FDA-Public Use
  Company Number: JP-PFIZER INC-2017225157

PATIENT
  Age: 79 Year
  Sex: Female
  Weight: 52.3 kg

DRUGS (13)
  1. ATORVASTATIN [Concomitant]
     Active Substance: ATORVASTATIN
     Indication: PERIPHERAL ARTERIAL OCCLUSIVE DISEASE
     Dosage: 10 MG, 1X/DAY
     Route: 048
  2. ZYVOX [Suspect]
     Active Substance: LINEZOLID
     Indication: STAPHYLOCOCCAL INFECTION
     Dosage: 600 MG, 2X/DAY (1200 MG DAILY)
     Route: 041
     Dates: start: 20170509, end: 20170515
  3. NEGMIN SUGAR [Concomitant]
     Indication: SKIN ULCER
     Dosage: AT AN APPROPRIATE DOSE, 1X/DAY
     Route: 061
     Dates: start: 20170501
  4. GEBEN [Concomitant]
     Active Substance: SILVER SULFADIAZINE
     Indication: SKIN ULCER
     Dosage: AT AN APPROPRIATE DOSE, 1X/DAY
     Route: 061
     Dates: start: 20170413
  5. HUMULIN R [Concomitant]
     Active Substance: INSULIN HUMAN
     Indication: TYPE 1 DIABETES MELLITUS
     Dosage: UNK (ALONG INSULIN-SCALE)
     Route: 041
     Dates: start: 20170501
  6. ZYVOX [Suspect]
     Active Substance: LINEZOLID
     Indication: STAPHYLOCOCCAL INFECTION
     Dosage: 600 MG, 2X/DAY
     Route: 048
     Dates: start: 20170516, end: 20170522
  7. VITAMEDIN INTRAVENOUS [Concomitant]
     Active Substance: CYANOCOBALAMIN\PYRIDOXINE HYDROCHLORIDE\THIAMINE
     Dosage: UNK, 1X/DAY
     Route: 041
     Dates: start: 20170502, end: 20170510
  8. FIBLAST [Concomitant]
     Indication: SKIN ULCER
     Dosage: AT AN APPROPRIATE DOSE, 1X/DAY
     Route: 061
     Dates: start: 20170427
  9. VEEN D [Concomitant]
     Active Substance: CALCIUM CHLORIDE\DEXTROSE\POTASSIUM CHLORIDE\SODIUM ACETATE\SODIUM CHLORIDE
     Dosage: 500 ML, 2X/DAY
     Route: 041
     Dates: start: 20170502, end: 20170510
  10. BFLUID [Concomitant]
     Active Substance: AMINO ACIDS\DEXTROSE\ELECTROLYTES NOS\VITAMINS
     Dosage: 500 ML, 2X/DAY
     Route: 041
     Dates: start: 20170511
  11. INSULIN GLARGINE [Concomitant]
     Active Substance: INSULIN GLARGINE
     Indication: TYPE 1 DIABETES MELLITUS
     Dosage: UNK, 1X/DAY
     Route: 058
  12. NOVORAPID [Concomitant]
     Active Substance: INSULIN ASPART
     Indication: TYPE 1 DIABETES MELLITUS
     Dosage: UNK
     Route: 058
  13. PLAVIX [Concomitant]
     Active Substance: CLOPIDOGREL BISULFATE
     Indication: PERIPHERAL ARTERIAL OCCLUSIVE DISEASE
     Dosage: 75 MG, 1X/DAY
     Route: 048

REACTIONS (2)
  - Blood glucose increased [Recovered/Resolved]
  - Platelet count decreased [Recovered/Resolved]

NARRATIVE: CASE EVENT DATE: 20170510
